FAERS Safety Report 8614109-X (Version None)
Quarter: 2012Q3

REPORT INFORMATION
  Report Type: 
  Country: None (occurrence: None)
  Receive Date: 20120823
  Receipt Date: 20120815
  Transmission Date: 20120928
  Serious: Yes (Hospitalization)
  Sender: FDA-Public Use
  Company Number: US-BAYER-2012-038757

PATIENT
  Age: 22 Year
  Sex: Female
  Weight: 93 kg

DRUGS (1)
  1. YAZ [Suspect]
     Indication: CONTRACEPTION
     Dosage: UNK
     Dates: start: 20040101, end: 20080101

REACTIONS (3)
  - CHOLECYSTECTOMY [None]
  - PAIN [None]
  - INJURY [None]
